FAERS Safety Report 18034110 (Version 1)
Quarter: 2020Q3

REPORT INFORMATION
  Report Type: Report from Study
  Country: ES (occurrence: ES)
  Receive Date: 20200716
  Receipt Date: 20200716
  Transmission Date: 20201103
  Serious: Yes (Disabling)
  Sender: FDA-Public Use
  Company Number: ES-MYLANLABS-2020M1063604

PATIENT
  Age: 66 Year
  Sex: Female
  Weight: 55 kg

DRUGS (5)
  1. METFORMIN [Suspect]
     Active Substance: METFORMIN HYDROCHLORIDE
     Indication: TYPE 2 DIABETES MELLITUS
     Dosage: UNK
     Dates: start: 20200622
  2. TOUJEO [Suspect]
     Active Substance: INSULIN GLARGINE
     Indication: TYPE 2 DIABETES MELLITUS
     Dosage: 26 IU, QD
     Route: 058
     Dates: start: 201602
  3. XELEVIA [Concomitant]
     Active Substance: SITAGLIPTIN PHOSPHATE
     Indication: TYPE 2 DIABETES MELLITUS
     Dosage: 1 DF, QD
     Route: 048
  4. TOUJEO [Suspect]
     Active Substance: INSULIN GLARGINE
     Dosage: 28 IU,QD
     Route: 058
     Dates: start: 2018
  5. JARDIANCE [Concomitant]
     Active Substance: EMPAGLIFLOZIN
     Indication: TYPE 2 DIABETES MELLITUS
     Dosage: 1 DF, QD
     Route: 048

REACTIONS (14)
  - Condition aggravated [Not Recovered/Not Resolved]
  - Dyspepsia [Not Recovered/Not Resolved]
  - Eating disorder [Recovered/Resolved]
  - Vomiting [Not Recovered/Not Resolved]
  - Visual impairment [Not Recovered/Not Resolved]
  - Diarrhoea [Not Recovered/Not Resolved]
  - Intentional dose omission [Unknown]
  - Skin discolouration [Unknown]
  - Intentional product misuse [Unknown]
  - Glycosylated haemoglobin increased [Recovering/Resolving]
  - Gait inability [Recovering/Resolving]
  - Blood glucose increased [Unknown]
  - Amputation stump pain [Unknown]
  - Dizziness [Not Recovered/Not Resolved]

NARRATIVE: CASE EVENT DATE: 201705
